FAERS Safety Report 6762992-5 (Version None)
Quarter: 2010Q2

REPORT INFORMATION
  Report Type: 
  Country: None (occurrence: None)
  Receive Date: 20100608
  Receipt Date: 20100608
  Transmission Date: 20101027
  Serious: Yes (Death)
  Sender: FDA-Public Use
  Company Number: None

PATIENT
  Age: 77 Year
  Sex: Male
  Weight: 81.6475 kg

DRUGS (7)
  1. CIPROFLOXACIN 250 MG COBALT FOR CIPRO 250 MG TABLET [Suspect]
     Indication: URINARY TRACT INFECTION
     Dosage: ONE 250MG TABLET TWICE DAILY BY MOUTH / 5 DAYS
     Route: 048
     Dates: start: 20100516, end: 20100521
  2. LIPITOR [Concomitant]
  3. ST.JOSEPH SAFETY COATED ASPIRIN [Concomitant]
  4. AMLODIPINE BESYLATE TABLET [Concomitant]
  5. BUMETANIDE [Concomitant]
  6. ESOMEPRAZOLE [Concomitant]
  7. ISOSORBIDE MONO [Concomitant]

REACTIONS (1)
  - COMPLETED SUICIDE [None]
